FAERS Safety Report 10021322 (Version 1)
Quarter: 2014Q1

REPORT INFORMATION
  Report Type: Spontaneous
  Country: US (occurrence: None)
  Receive Date: 20140318
  Receipt Date: 20140318
  Transmission Date: 20141002
  Serious: Yes (Disabling, Other)
  Sender: FDA-Public Use
  Company Number: None

PATIENT
  Age: 31 Year
  Sex: Female
  Weight: 72.58 kg

DRUGS (2)
  1. MIRVASO [Suspect]
     Indication: FLUSHING
     Dosage: SMALL SQUEEZE OF CREAM  ONCE DAILY
     Dates: start: 20140304, end: 20140311
  2. MIRVASO [Suspect]
     Indication: HYPERKERATOSIS
     Dosage: SMALL SQUEEZE OF CREAM  ONCE DAILY
     Dates: start: 20140304, end: 20140311

REACTIONS (5)
  - Dizziness [None]
  - Pallor [None]
  - Flushing [None]
  - Pain [None]
  - Angiopathy [None]
